FAERS Safety Report 9247478 (Version 1)
Quarter: 2013Q2

REPORT INFORMATION
  Report Type: Spontaneous
  Country: PL (occurrence: PL)
  Receive Date: 20130423
  Receipt Date: 20130423
  Transmission Date: 20140414
  Serious: Yes (Hospitalization)
  Sender: FDA-Public Use
  Company Number: PL-ASTELLAS-2013US004310

PATIENT
  Age: 1 Year
  Sex: Male

DRUGS (2)
  1. PROTOPIC [Suspect]
     Indication: DERMATITIS ATOPIC
     Dosage: 0.03 %, UNKNOWN/D
     Route: 061
     Dates: start: 20110823
  2. HYDROXYZINE [Concomitant]
     Indication: DERMATITIS ATOPIC
     Dosage: UNK UNK, UNKNOWN/D
     Route: 061

REACTIONS (3)
  - Off label use [Unknown]
  - Eczema [Unknown]
  - Skin test [Unknown]
